FAERS Safety Report 5341265-1 (Version None)
Quarter: 2007Q2

REPORT INFORMATION
  Report Type: 
  Country: None (occurrence: None)
  Receive Date: 20070530
  Receipt Date: 20070518
  Transmission Date: 20071010
  Serious: Yes (Other)
  Sender: FDA-Public Use
  Company Number: TPA2007A00960

PATIENT
  Age: 6 Decade
  Sex: Female
  Weight: 117.9352 kg

DRUGS (4)
  1. ACTOPLUS MET [Suspect]
     Indication: DIABETES MELLITUS NON-INSULIN-DEPENDENT
     Dosage: 15/850 MG, 2 IN 1 D, PER ORAL
     Route: 048
     Dates: start: 20050508
  2. UNIRETIC (HYDROCHLOROTHIAZIDE, MOEXIPRIL HYDROCHLORIDE) [Concomitant]
  3. VYTORIN [Concomitant]
  4. SYNTHROID [Concomitant]

REACTIONS (2)
  - FALL [None]
  - RADIUS FRACTURE [None]
